FAERS Safety Report 9015548 (Version 1)
Quarter: 2013Q1

REPORT INFORMATION
  Report Type: Spontaneous
  Country: US (occurrence: None)
  Receive Date: 20130102
  Receipt Date: 20130102
  Transmission Date: 20140127
  Serious: Yes (Other)
  Sender: FDA-Public Use
  Company Number: 20120771

PATIENT
  Age: 14 Year
  Sex: Male

DRUGS (3)
  1. ZIDOVUDINE [Suspect]
     Indication: HIV INFECTION
  2. LOPINAVIR/RITONAVIR [Suspect]
     Indication: HIV INFECTION
  3. DIDANOSINE [Suspect]
     Indication: HIV INFECTION

REACTIONS (8)
  - Post streptococcal glomerulonephritis [None]
  - Immune reconstitution inflammatory syndrome [None]
  - Back pain [None]
  - Herpes zoster [None]
  - Haemoglobin [None]
  - Haemoglobin decreased [None]
  - Renal failure acute [None]
  - Nephrogenic anaemia [None]
